FAERS Safety Report 9062694 (Version 1)
Quarter: 2013Q1

REPORT INFORMATION
  Report Type: Spontaneous
  Country: US (occurrence: US)
  Receive Date: 20130213
  Receipt Date: 20130213
  Transmission Date: 20140127
  Serious: No
  Sender: FDA-Public Use
  Company Number: US-BAYER-2013-010556

PATIENT
  Sex: Female
  Weight: 66.67 kg

DRUGS (9)
  1. BETASERON [Suspect]
     Dosage: 0.3 MG, QOD
  2. LYRICA [Concomitant]
     Dosage: 75 MG, UNK
  3. LISINOPRIL [Concomitant]
     Dosage: 5 MG, UNK
  4. OMEPRAZOLE [Concomitant]
     Dosage: 40 MG, UNK
  5. FLUOXETINE [Concomitant]
     Dosage: 10 MG, UNK
  6. RANITIDINE [Concomitant]
     Dosage: 75 MG, UNK
  7. OXYBUTYNIN [Concomitant]
     Dosage: 5 MG, UNK
  8. VITAMIN D3 [Concomitant]
     Dosage: 2000 U, UNK
  9. NIFEDIPIN [Concomitant]
     Dosage: 10 MG, UNK

REACTIONS (1)
  - Drug ineffective [Unknown]
